FAERS Safety Report 7433634-0 (Version None)
Quarter: 2011Q2

REPORT INFORMATION
  Report Type: 
  Country: None (occurrence: None)
  Receive Date: 20110422
  Receipt Date: 20110418
  Transmission Date: 20111010
  Serious: Yes (Other)
  Sender: FDA-Public Use
  Company Number: FR-MERCK-1010FRA00032

PATIENT
  Age: 48 Year
  Sex: Male

DRUGS (6)
  1. EMEND [Suspect]
     Indication: LUNG NEOPLASM MALIGNANT
     Route: 048
     Dates: start: 20100715
  2. CISPLATIN [Suspect]
     Indication: LUNG NEOPLASM MALIGNANT
     Route: 051
     Dates: start: 20100715
  3. FOLIC ACID [Concomitant]
     Route: 048
     Dates: start: 20100715
  4. VERAPAMIL HYDROCHLORIDE [Concomitant]
     Indication: HYPERTENSION
     Route: 048
  5. PEMETREXED DISODIUM [Suspect]
     Indication: LUNG NEOPLASM MALIGNANT
     Route: 041
     Dates: start: 20100715
  6. CYANOCOBALAMIN [Concomitant]
     Route: 048
     Dates: start: 20100715

REACTIONS (2)
  - PHOTOSENSITIVITY REACTION [None]
  - AREFLEXIA [None]
